FAERS Safety Report 14726151 (Version 2)
Quarter: 2018Q2

REPORT INFORMATION
  Report Type: Spontaneous
  Country: PE (occurrence: PE)
  Receive Date: 20180406
  Receipt Date: 20180418
  Transmission Date: 20180711
  Serious: Yes (Other)
  Sender: FDA-Public Use
  Company Number: PE-INCYTE CORPORATION-2018IN003204

PATIENT

DRUGS (1)
  1. JAKAVI [Suspect]
     Active Substance: RUXOLITINIB
     Indication: MYELOFIBROSIS
     Dosage: 40 MG, (20 MG IN THE MORNING AND 20 MG AT NIGHT)
     Route: 048

REACTIONS (2)
  - Splenomegaly [Not Recovered/Not Resolved]
  - White blood cell count increased [Unknown]
